FAERS Safety Report 6670378-7 (Version None)
Quarter: 2010Q2

REPORT INFORMATION
  Report Type: 
  Country: None (occurrence: None)
  Receive Date: 20100407
  Receipt Date: 20100329
  Transmission Date: 20101027
  Serious: Yes (Other)
  Sender: FDA-Public Use
  Company Number: US-BIOGENIDEC-2010BI009322

PATIENT
  Age: 50 Year
  Sex: Male

DRUGS (1)
  1. TYSABRI [Suspect]
     Indication: MULTIPLE SCLEROSIS
     Route: 042
     Dates: start: 20070605, end: 20091105

REACTIONS (6)
  - CARDIAC DISORDER [None]
  - CARDIOMYOPATHY [None]
  - LIGAMENT RUPTURE [None]
  - NEUROPATHY PERIPHERAL [None]
  - PROSTATOMEGALY [None]
  - SYSTEMIC LUPUS ERYTHEMATOSUS [None]
